FAERS Safety Report 10551956 (Version 3)
Quarter: 2014Q4

REPORT INFORMATION
  Report Type: Spontaneous
  Country: JP (occurrence: JP)
  Receive Date: 20141029
  Receipt Date: 20141121
  Transmission Date: 20150529
  Serious: Yes (Other)
  Sender: FDA-Public Use
  Company Number: JP-PFIZER INC-2014295779

PATIENT
  Age: 31 Year
  Sex: Female

DRUGS (1)
  1. JZOLOFT [Suspect]
     Active Substance: SERTRALINE HYDROCHLORIDE
     Indication: DEPRESSION
     Dosage: 50 MG, 2X/DAY
     Route: 048

REACTIONS (3)
  - Pain [Recovering/Resolving]
  - Post-traumatic neck syndrome [Recovering/Resolving]
  - Road traffic accident [Recovering/Resolving]
